FAERS Safety Report 11937756 (Version 1)
Quarter: 2016Q1

REPORT INFORMATION
  Report Type: Spontaneous
  Country: US (occurrence: US)
  Receive Date: 20160122
  Receipt Date: 20160122
  Transmission Date: 20160526
  Serious: Yes (Death, Other)
  Sender: FDA-Public Use
  Company Number: US-BRISTOL-MYERS SQUIBB COMPANY-BMS-2016-002066

PATIENT
  Sex: Male

DRUGS (1)
  1. OPDIVO [Suspect]
     Active Substance: NIVOLUMAB
     Indication: CARDIAC NEOPLASM UNSPECIFIED
     Dosage: 200 MG, UNK
     Route: 042
     Dates: start: 20151214

REACTIONS (6)
  - Fatigue [Unknown]
  - Depression [Unknown]
  - Decreased appetite [Unknown]
  - Dyspnoea [Unknown]
  - Malignant neoplasm progression [Fatal]
  - Off label use [Unknown]
